FAERS Safety Report 8353682-6 (Version None)
Quarter: 2012Q2

REPORT INFORMATION
  Report Type: 
  Country: None (occurrence: None)
  Receive Date: 20120511
  Receipt Date: 20120503
  Transmission Date: 20120825
  Serious: Yes (Hospitalization)
  Sender: FDA-Public Use
  Company Number: US-PFIZER INC-2012108314

PATIENT
  Sex: Male
  Weight: 73 kg

DRUGS (14)
  1. PACLITAXEL [Suspect]
     Dosage: 125 MG/M2, CYCLIC, EVERY 3 WEEKS
     Route: 042
     Dates: start: 20120131
  2. MAXIDEX [Concomitant]
     Dosage: UNK
     Dates: start: 20120313
  3. VITAMIN D [Concomitant]
     Dosage: UNK
     Dates: start: 20110401
  4. LISINOPRIL [Concomitant]
     Dosage: UNK
     Dates: start: 20120313
  5. ATIVAN [Concomitant]
     Dosage: UNK
     Dates: start: 20120117
  6. PRADAXA [Concomitant]
     Dosage: UNK
     Dates: start: 20111210
  7. TRICOR [Concomitant]
     Dosage: UNK
     Dates: start: 20090201
  8. CARBOPLATIN [Suspect]
     Dosage: 430 MG, AUC4
     Route: 042
     Dates: start: 20120131
  9. AXITINIB [Suspect]
     Indication: METASTATIC MALIGNANT MELANOMA
     Dosage: 3 MG, 2X/DAY
     Route: 048
     Dates: start: 20120131
  10. NYSTATIN [Concomitant]
     Dosage: UNK
     Dates: start: 20120209
  11. ACIDOPHILUS [Concomitant]
     Dosage: UNK
     Dates: start: 20090301
  12. ATENOLOL [Concomitant]
     Dosage: UNK
     Dates: start: 20120313
  13. TYLENOL (CAPLET) [Concomitant]
     Dosage: UNK
     Dates: start: 20120207
  14. ZETAR [Concomitant]
     Dosage: UNK
     Dates: start: 20090201

REACTIONS (3)
  - DYSPNOEA [None]
  - DECREASED APPETITE [None]
  - MUSCULAR WEAKNESS [None]
